FAERS Safety Report 13034801 (Version 1)
Quarter: 2016Q4

REPORT INFORMATION
  Report Type: Report from Study
  Country: NL (occurrence: NL)
  Receive Date: 20161216
  Receipt Date: 20161216
  Transmission Date: 20170207
  Serious: Yes (Hospitalization)
  Sender: FDA-Public Use
  Company Number: NL-AMGEN-NLDSL2016177031

PATIENT
  Age: 53 Year
  Sex: Male

DRUGS (1)
  1. NEULASTA [Suspect]
     Active Substance: PEGFILGRASTIM
     Indication: NEUTROPENIA
     Dosage: 0.6 ML, Q2WK (1.00 STUKS)
     Route: 058

REACTIONS (2)
  - Bacterial infection [Unknown]
  - Surgery [Unknown]

NARRATIVE: CASE EVENT DATE: 201611
